FAERS Safety Report 8323135-X (Version None)
Quarter: 2012Q2

REPORT INFORMATION
  Report Type: 
  Country: None (occurrence: None)
  Receive Date: 20120430
  Receipt Date: 20120424
  Transmission Date: 20120825
  Serious: Yes (Death, Hospitalization)
  Sender: FDA-Public Use
  Company Number: PHHO2011FR02200

PATIENT
  Sex: Male
  Weight: 101 kg

DRUGS (5)
  1. ZORTRESS [Suspect]
     Indication: RENAL TRANSPLANT
     Dosage: UNK
     Dates: start: 20110103, end: 20110107
  2. PREDNISONE TAB [Concomitant]
     Indication: RENAL TRANSPLANT
     Dosage: 40 MG, QD
     Dates: start: 20110104
  3. MYCOPHENOLATE MOFETIL (CELLCEPT) [Concomitant]
     Indication: RENAL TRANSPLANT
     Dosage: 40 MG, QD
     Dates: start: 20110104, end: 20110120
  4. ZORTRESS [Suspect]
     Dosage: 4 MG, QD
     Dates: start: 20110108, end: 20110114
  5. ZORTRESS [Suspect]
     Dosage: 3.5 MG, QD
     Dates: start: 20110115, end: 20110119

REACTIONS (2)
  - SEPTIC SHOCK [None]
  - PHLEBITIS [None]
